FAERS Safety Report 6023786-1 (Version None)
Quarter: 2008Q4

REPORT INFORMATION
  Report Type: 
  Country: None (occurrence: None)
  Receive Date: 20081230
  Receipt Date: 20081218
  Transmission Date: 20090506
  Serious: Yes (Other)
  Sender: FDA-Public Use
  Company Number: DE-GENENTECH-273874

PATIENT
  Sex: Female

DRUGS (2)
  1. RANIBIZUMAB [Suspect]
     Indication: MACULAR DEGENERATION
     Dosage: UNK
     Route: 031
     Dates: start: 20080630, end: 20080901
  2. DIAMOX [Suspect]
     Indication: PROPHYLAXIS
     Dosage: UNK
     Dates: start: 20080630

REACTIONS (2)
  - HYPOAESTHESIA [None]
  - PARAESTHESIA [None]
